FAERS Safety Report 19113867 (Version 4)
Quarter: 2021Q3

REPORT INFORMATION
  Report Type: Spontaneous
  Country: UA (occurrence: UA)
  Receive Date: 20210408
  Receipt Date: 20210712
  Transmission Date: 20211014
  Serious: Yes (Life-Threatening, Other)
  Sender: FDA-Public Use
  Company Number: UA-CELGENEUS-UKR-20210401148

PATIENT
  Age: 59 Year
  Sex: Male
  Weight: 129.6 kg

DRUGS (7)
  1. SERPLULIMAB. [Suspect]
     Active Substance: SERPLULIMAB
     Route: 041
     Dates: start: 20210217, end: 20210217
  2. EKVATOR [Concomitant]
     Indication: ESSENTIAL HYPERTENSION
     Dosage: 5MG+20MG
     Route: 048
     Dates: start: 202011
  3. ABRAXANE [Suspect]
     Active Substance: PACLITAXEL
     Indication: LUNG NEOPLASM MALIGNANT
     Dosage: 244 MILLIGRAM
     Route: 065
     Dates: start: 20210217
  4. ESSENTIALE [Concomitant]
     Indication: PROPHYLAXIS
     Route: 048
     Dates: start: 20210225, end: 20210330
  5. CARBOPLATIN. [Suspect]
     Active Substance: CARBOPLATIN
     Indication: LUNG NEOPLASM MALIGNANT
     Dosage: 900 MILLIGRAM
     Route: 041
     Dates: start: 20210217
  6. SERPLULIMAB. [Suspect]
     Active Substance: SERPLULIMAB
     Indication: LUNG NEOPLASM MALIGNANT
     Dosage: 589.5 MILLIGRAM
     Route: 041
     Dates: start: 20210217, end: 20210217
  7. MEDROL [Concomitant]
     Active Substance: METHYLPREDNISOLONE
     Indication: NEUTROPENIA
     Dosage: 4 MILLIGRAM
     Route: 048
     Dates: start: 20210325, end: 20210330

REACTIONS (2)
  - Hyponatraemia [Recovered/Resolved]
  - Hypochloraemia [Recovered/Resolved]

NARRATIVE: CASE EVENT DATE: 20210329
